FAERS Safety Report 6052788-4 (Version None)
Quarter: 2009Q1

REPORT INFORMATION
  Report Type: 
  Country: None (occurrence: None)
  Receive Date: 20090127
  Receipt Date: 20090116
  Transmission Date: 20090719
  Serious: Yes (Hospitalization)
  Sender: FDA-Public Use
  Company Number: US-JNJFOC-20090104353

PATIENT
  Age: 77 Year
  Sex: Female
  Weight: 61.69 kg

DRUGS (6)
  1. TYLENOL (CAPLET) [Suspect]
     Route: 048
  2. TYLENOL (CAPLET) [Suspect]
     Indication: ARTHRITIS
     Route: 048
  3. PRILOSEC [Concomitant]
     Indication: GASTROOESOPHAGEAL REFLUX DISEASE
  4. MULTI-VITAMIN [Concomitant]
     Indication: MEDICAL DIET
  5. VIACTIV [Concomitant]
     Indication: MEDICAL DIET
  6. CALCIUM WITH VITAMIN D [Concomitant]
     Indication: MEDICAL DIET

REACTIONS (4)
  - ATRIAL FIBRILLATION [None]
  - FOREIGN BODY TRAUMA [None]
  - OROPHARYNGEAL PAIN [None]
  - SOFT TISSUE INJURY [None]
